FAERS Safety Report 14865643 (Version 2)
Quarter: 2018Q3

REPORT INFORMATION
  Report Type: Spontaneous
  Country: US (occurrence: US)
  Receive Date: 20180508
  Receipt Date: 20180806
  Transmission Date: 20181010
  Serious: No
  Sender: FDA-Public Use
  Company Number: US-009507513-1804USA012086

PATIENT
  Age: 22 Year
  Sex: Female

DRUGS (4)
  1. RITONAVIR. [Suspect]
     Active Substance: RITONAVIR
     Dosage: 200 DF, UNK; SINCE THE START OF THE FIRST TRIMESTER
     Route: 048
  2. TRUVADA [Suspect]
     Active Substance: EMTRICITABINE\TENOFOVIR DISOPROXIL FUMARATE
     Dosage: 1 DF, UNK; SINCE THE START OF THE FIRST TRIMESTER
     Route: 048
  3. DARUNAVIR [Suspect]
     Active Substance: DARUNAVIR
     Dosage: 1200 DF, UNK; SINCE THE START OF THE FIRST TRIMESTER
     Route: 048
  4. ISENTRESS [Suspect]
     Active Substance: RALTEGRAVIR POTASSIUM
     Dosage: 800 DF, UNK; DURING THE FIRST TRIMESTER
     Route: 048

REACTIONS (2)
  - No adverse event [Unknown]
  - Exposure during pregnancy [Recovered/Resolved]

NARRATIVE: CASE EVENT DATE: 2011
